FAERS Safety Report 21878689 (Version 1)
Quarter: 2023Q1

REPORT INFORMATION
  Report Type: Spontaneous
  Country: US (occurrence: None)
  Receive Date: 20230117
  Receipt Date: 20230117
  Transmission Date: 20230417
  Serious: No
  Sender: FDA-Public Use
  Company Number: None

PATIENT
  Age: 64 Year
  Sex: Male

DRUGS (1)
  1. CAPECITABINE [Suspect]
     Active Substance: CAPECITABINE
     Dosage: 1150 MG BID ORAL
     Route: 048

REACTIONS (2)
  - Oral pain [None]
  - Lip injury [None]

NARRATIVE: CASE EVENT DATE: 20230117
